FAERS Safety Report 24636750 (Version 1)
Quarter: 2024Q4

REPORT INFORMATION
  Report Type: Spontaneous
  Country: US (occurrence: None)
  Receive Date: 20241118
  Receipt Date: 20241118
  Transmission Date: 20250114
  Serious: Yes (Other)
  Sender: Public
  Company Number: None

PATIENT
  Age: 59 Year
  Sex: Male

DRUGS (1)
  1. CABOMETYX [Suspect]
     Active Substance: CABOZANTINIB S-MALATE
     Dates: start: 20240729, end: 20241118

REACTIONS (2)
  - Palmar-plantar erythrodysaesthesia syndrome [None]
  - Diarrhoea [None]

NARRATIVE: CASE EVENT DATE: 20241118
